FAERS Safety Report 6617477-3 (Version None)
Quarter: 2010Q1

REPORT INFORMATION
  Report Type: 
  Country: None (occurrence: None)
  Receive Date: 20100302
  Receipt Date: 20100222
  Transmission Date: 20100710
  Serious: Yes (Hospitalization)
  Sender: FDA-Public Use
  Company Number: 230006J09CAN

PATIENT
  Sex: Female

DRUGS (10)
  1. REBIF [Suspect]
     Indication: RELAPSING-REMITTING MULTIPLE SCLEROSIS
     Dosage: 44 MCG, 3 IN 1 WEEKS; 44 MCG, 3 IN 1 WEEKS
     Dates: start: 20090820, end: 20091201
  2. BACLOFEN [Concomitant]
  3. ELAVIL [Concomitant]
  4. GABAPENTIN [Concomitant]
  5. TOPAMAX [Concomitant]
  6. DOCUSATE SODIUM (DOCUSATE SODIUM) [Concomitant]
  7. VITAMIN D AND CALCIUM (CALCIUM WITH VITAMIN D /01233101/) [Concomitant]
  8. WELLBUTRIN [Concomitant]
  9. LECTOPAM (BROMAZEPAM) [Concomitant]
  10. METRONIDAZOLE [Concomitant]

REACTIONS (2)
  - MULTIPLE SCLEROSIS RELAPSE [None]
  - PNEUMONIA ASPIRATION [None]
